FAERS Safety Report 4504748-X (Version None)
Quarter: 2004Q4

REPORT INFORMATION
  Report Type: 
  Country: None (occurrence: None)
  Receive Date: 20041118
  Receipt Date: 20041013
  Transmission Date: 20050328
  Serious: Yes (Life-Threatening, Hospitalization, Disabling, Other)
  Sender: FDA-Public Use
  Company Number: US-MERCK-0410USA01997

PATIENT
  Age: 69 Year
  Sex: Female
  Weight: 131 kg

DRUGS (4)
  1. VIOXX [Suspect]
     Indication: ARTHRITIS
     Route: 048
     Dates: start: 20020101, end: 20040930
  2. HYZAAR [Concomitant]
     Route: 065
  3. HYDROCHLOROTHIAZIDE [Concomitant]
     Route: 048
  4. COZAAR [Concomitant]
     Indication: HYPERTENSION
     Route: 048

REACTIONS (1)
  - ACUTE MYOCARDIAL INFARCTION [None]
